FAERS Safety Report 4979573-6 (Version None)
Quarter: 2006Q2

REPORT INFORMATION
  Report Type: 
  Country: None (occurrence: None)
  Receive Date: 20060421
  Receipt Date: 20060118
  Transmission Date: 20061013
  Serious: Yes (Hospitalization)
  Sender: FDA-Public Use
  Company Number: JP-ROCHE-433058

PATIENT
  Age: 8 Year
  Sex: Male
  Weight: 30 kg

DRUGS (5)
  1. TAMIFLU [Suspect]
     Dosage: FORM REPORTED AS DRY SYRUP.
     Route: 048
     Dates: start: 20060116, end: 20060116
  2. ASVERIN [Concomitant]
     Route: 048
     Dates: start: 20060116, end: 20060116
  3. MUCOSAL [Concomitant]
     Route: 048
     Dates: start: 20060116, end: 20060116
  4. PERIACTIN [Concomitant]
     Route: 048
     Dates: start: 20060116, end: 20060116
  5. CALONAL [Concomitant]
     Dosage: FORM REPORTED AS FINE GRANULES.
     Route: 048
     Dates: start: 20060116

REACTIONS (2)
  - ABNORMAL BEHAVIOUR [None]
  - ELECTROENCEPHALOGRAM ABNORMAL [None]
